FAERS Safety Report 7228013-5 (Version None)
Quarter: 2011Q1

REPORT INFORMATION
  Report Type: 
  Country: None (occurrence: None)
  Receive Date: 20110114
  Receipt Date: 20110104
  Transmission Date: 20110831
  Serious: Yes (Other)
  Sender: FDA-Public Use
  Company Number: GB-GENENTECH-311896

PATIENT
  Age: 65 Year
  Sex: Male

DRUGS (11)
  1. MYCOPHENOLATE MOFETIL [Suspect]
     Indication: RENAL VASCULITIS
     Dosage: 1 G, BID
     Route: 065
     Dates: start: 20080201
  2. AZATHIOPRINE [Concomitant]
     Indication: PRODUCT USED FOR UNKNOWN INDICATION
     Dosage: UNK
     Dates: end: 20080701
  3. CYCLOPHOSPHAMIDE [Concomitant]
     Indication: PRODUCT USED FOR UNKNOWN INDICATION
     Dosage: 200 MG, X1
     Dates: start: 20071101, end: 20080401
  4. RITUXIMAB [Suspect]
     Dosage: 375 MG/M2, 1/WEEK
     Route: 065
     Dates: start: 20090501, end: 20091201
  5. PREDNISOLONE [Suspect]
     Indication: RENAL VASCULITIS
     Dosage: 80 MG, UNK
     Route: 065
     Dates: start: 20071101
  6. METHYLPREDNISOLONE [Concomitant]
     Indication: VASCULITIS
     Dosage: UNK
     Route: 042
  7. RITUXIMAB [Suspect]
     Indication: RENAL VASCULITIS
     Dosage: 375 MG/M2, 1/WEEK
     Route: 065
     Dates: start: 20080901, end: 20081001
  8. MYCOPHENOLATE MOFETIL [Suspect]
     Dosage: 1 G, BID
     Route: 065
     Dates: start: 20080701, end: 20080901
  9. MYCOPHENOLATE MOFETIL [Suspect]
     Dosage: UNK
     Route: 065
  10. PREDNISOLONE [Suspect]
     Dosage: 25 MG, UNK
     Route: 065
     Dates: start: 20080901
  11. COTRIM [Concomitant]
     Indication: BLOOD CREATININE INCREASED
     Dosage: UNK
     Dates: start: 20071101

REACTIONS (14)
  - CONDITION AGGRAVATED [None]
  - RESPIRATORY GAS EXCHANGE DISORDER [None]
  - KIDNEY FIBROSIS [None]
  - DRUG INEFFECTIVE [None]
  - LEUKOPENIA [None]
  - MYELITIS TRANSVERSE [None]
  - PULMONARY VASCULITIS [None]
  - SPINAL VASCULAR DISORDER [None]
  - CUSHING'S SYNDROME [None]
  - LOWER RESPIRATORY TRACT INFECTION [None]
  - RENAL VASCULITIS [None]
  - VASCULITIS [None]
  - RENAL TUBULAR ATROPHY [None]
  - PLEURAL FIBROSIS [None]
